FAERS Safety Report 5271382-6 (Version None)
Quarter: 2007Q1

REPORT INFORMATION
  Report Type: 
  Country: None (occurrence: None)
  Receive Date: 20070315
  Receipt Date: 20070305
  Transmission Date: 20070707
  Serious: Yes (Hospitalization, Other)
  Sender: FDA-Public Use
  Company Number: GXKR2007JP02330

PATIENT
  Age: 12 Year
  Sex: Female

DRUGS (3)
  1. ALLOPURINOL [Suspect]
     Indication: HYPERURICAEMIA
  2. PREDNISOLONE [Suspect]
     Dosage: 2 MG/KG, QD
  3. FAMOTIDINE [Concomitant]

REACTIONS (6)
  - ACUTE RESPIRATORY DISTRESS SYNDROME [None]
  - BLOOD PRESSURE INCREASED [None]
  - GASTRIC ULCER [None]
  - NEPHROTIC SYNDROME [None]
  - RESPIRATORY TRACT INFECTION [None]
  - TUBULOINTERSTITIAL NEPHRITIS [None]
